FAERS Safety Report 7464788-8 (Version None)
Quarter: 2011Q2

REPORT INFORMATION
  Report Type: 
  Country: None (occurrence: None)
  Receive Date: 20110509
  Receipt Date: 20110408
  Transmission Date: 20111010
  Serious: Yes (Hospitalization)
  Sender: FDA-Public Use
  Company Number: US-BAYER-201037351NA

PATIENT
  Age: 40 Year
  Sex: Female
  Weight: 113.38 kg

DRUGS (3)
  1. VITAMIN K TAB [Concomitant]
  2. YAZ [Suspect]
     Indication: ORAL CONTRACEPTION
     Dosage: UNK
     Route: 048
     Dates: start: 20080101, end: 20090101
  3. YASMIN [Suspect]
     Indication: ORAL CONTRACEPTION
     Dosage: UNK
     Route: 048
     Dates: start: 20031101, end: 20050801

REACTIONS (4)
  - DEEP VEIN THROMBOSIS [None]
  - FATIGUE [None]
  - PULMONARY EMBOLISM [None]
  - OEDEMA PERIPHERAL [None]
